FAERS Safety Report 16625031 (Version 2)
Quarter: 2019Q3

REPORT INFORMATION
  Report Type: Report from Study
  Country: FR (occurrence: FR)
  Receive Date: 20190724
  Receipt Date: 20190803
  Transmission Date: 20191004
  Serious: Yes (Hospitalization, Other)
  Sender: FDA-Public Use
  Company Number: FR-JAZZ-2019-FR-010161

PATIENT

DRUGS (5)
  1. ARACYTINE [Concomitant]
     Active Substance: CYTARABINE
     Indication: HEPATOTOXICITY
  2. LANVIS [Concomitant]
     Active Substance: THIOGUANINE ANHYDROUS
     Indication: HEPATOTOXICITY
  3. DEFITELIO [Suspect]
     Active Substance: DEFIBROTIDE SODIUM
     Indication: THROMBOTIC MICROANGIOPATHY
     Dosage: 25 MG/KG/DAY
     Route: 042
     Dates: start: 20160226, end: 20160331
  4. CYCLOPHOSPHAMIDE. [Concomitant]
     Active Substance: CYCLOPHOSPHAMIDE
     Indication: HEPATOTOXICITY
  5. ETOPOSIDE. [Concomitant]
     Active Substance: ETOPOSIDE
     Indication: HEPATOTOXICITY

REACTIONS (2)
  - Osteonecrosis [Unknown]
  - Product use in unapproved indication [Unknown]

NARRATIVE: CASE EVENT DATE: 20160226
